FAERS Safety Report 9644308 (Version 1)
Quarter: 2013Q4

REPORT INFORMATION
  Report Type: Spontaneous
  Country: AT (occurrence: AT)
  Receive Date: 20131025
  Receipt Date: 20131025
  Transmission Date: 20140711
  Serious: Yes (Life-Threatening, Other)
  Sender: FDA-Public Use
  Company Number: AT-009507513-1310AUT010842

PATIENT
  Age: 71 Year
  Sex: Female

DRUGS (22)
  1. REBETOL [Suspect]
     Indication: HEPATITIS C
     Dosage: 400 MG, TID
     Route: 048
     Dates: start: 20120903, end: 20130221
  2. PEGINTRON [Suspect]
     Indication: HEPATITIS C
     Dosage: 120 MICROGRAM, QW
     Route: 058
     Dates: start: 20120903, end: 20130221
  3. MEXALEN [Concomitant]
     Dosage: 50 MG, QW,1/2 STD. VOR PEGLNTRON
     Dates: start: 20120903
  4. ATACAND [Concomitant]
     Dosage: 16 MG, QD,0-0-1
     Dates: start: 20121001
  5. CLARITHROMYCIN [Concomitant]
     Dosage: 500 MG, BID
     Dates: start: 20121130, end: 20121207
  6. NEBIVOLOL HYDROCHLORIDE [Concomitant]
     Dosage: 5 MG, QD,1/2-0-0
     Dates: start: 20121130
  7. PARACODIN (DIHYDROCODEINE THIOCYANATE) [Concomitant]
     Dosage: 20 GTT, TID, 3X20
     Route: 048
     Dates: start: 20121130
  8. SUPRESSIN [Concomitant]
     Dosage: 2 MG, QD,0-0-1/2
     Dates: start: 201212
  9. NOVALGIN (DIPYRONE) [Concomitant]
     Dosage: 1 DF, TID, 3X1
     Dates: start: 201212
  10. AMLODIPINE [Concomitant]
     Dosage: 5 MG, BID
     Dates: start: 201212
  11. BETASERC [Concomitant]
     Dosage: 16 MG, QD
     Dates: start: 201212
  12. THROMBO ASS [Concomitant]
     Dosage: 100 MG, QD
  13. PASPERTIN [Concomitant]
     Dosage: 20 GTT, TID
  14. PANTOLOC [Concomitant]
     Dosage: 40 MG, QD
  15. NOVOMIX 30 [Concomitant]
     Dosage: LT. SCHEMA
  16. NITROSPRAY [Concomitant]
     Dosage: BEI BEDARF
  17. VENOSIN [Concomitant]
     Dosage: 1 DF, QD
  18. ATACAND PLUS [Concomitant]
     Dosage: 1 DF, QD
  19. SIMVASTATIN [Concomitant]
     Dosage: 40 MG, QD
     Route: 048
  20. HALCION [Concomitant]
     Dosage: 0.25 MG, QD
  21. BERODUAL [Concomitant]
     Dosage: 2 DF, Q4H
     Dates: start: 20121130
  22. ATACAND [Concomitant]
     Dosage: 16 MG, QD

REACTIONS (2)
  - Adenocarcinoma pancreas [Not Recovered/Not Resolved]
  - Metastases to liver [Not Recovered/Not Resolved]
